FAERS Safety Report 7700742-6 (Version None)
Quarter: 2011Q3

REPORT INFORMATION
  Report Type: 
  Country: None (occurrence: None)
  Receive Date: 20110822
  Receipt Date: 20110811
  Transmission Date: 20111222
  Serious: Yes (Other)
  Sender: FDA-Public Use
  Company Number: US-AMGEN-USASP2011041011

PATIENT
  Sex: Male

DRUGS (1)
  1. ENBREL [Suspect]
     Indication: RHEUMATOID ARTHRITIS
     Dosage: 50 MG, QWK
     Dates: start: 20080215

REACTIONS (8)
  - PAIN OF SKIN [None]
  - PRURITUS [None]
  - HERPES ZOSTER [None]
  - POST-TRAUMATIC STRESS DISORDER [None]
  - PAIN IN EXTREMITY [None]
  - MANIA [None]
  - INJECTION SITE PAIN [None]
  - LOCALISED INFECTION [None]
